FAERS Safety Report 20593018 (Version 3)
Quarter: 2022Q2

REPORT INFORMATION
  Report Type: Report from Study
  Country: US (occurrence: US)
  Receive Date: 20220315
  Receipt Date: 20220613
  Transmission Date: 20220720
  Serious: Yes (Other)
  Sender: FDA-Public Use
  Company Number: US-AUROBINDO-AUR-APL-2022-007368

PATIENT
  Sex: Male

DRUGS (4)
  1. BELINOSTAT [Suspect]
     Active Substance: BELINOSTAT
     Indication: Chondrosarcoma
     Dosage: 10250 UNK
     Route: 065
     Dates: start: 20220107
  2. BELINOSTAT [Suspect]
     Active Substance: BELINOSTAT
     Dosage: 2050 UNK
     Route: 065
  3. BELINOSTAT [Suspect]
     Active Substance: BELINOSTAT
     Dosage: 9200 UNK
     Route: 065
  4. CEDAZURIDINE\DECITABINE [Suspect]
     Active Substance: CEDAZURIDINE\DECITABINE
     Indication: Chondrosarcoma
     Dosage: 500 UNK
     Route: 065
     Dates: start: 20220204

REACTIONS (4)
  - Neutrophil count decreased [Unknown]
  - Nausea [Unknown]
  - Hypophosphataemia [Unknown]
  - White blood cell count decreased [Unknown]

NARRATIVE: CASE EVENT DATE: 20220107
